FAERS Safety Report 16749527 (Version 1)
Quarter: 2019Q3

REPORT INFORMATION
  Report Type: Spontaneous
  Country: CN (occurrence: CN)
  Receive Date: 20190828
  Receipt Date: 20190828
  Transmission Date: 20191005
  Serious: Yes (Other)
  Sender: FDA-Public Use
  Company Number: CN-PFIZER INC-2019363607

PATIENT
  Age: 3 Year
  Sex: Female
  Weight: 20 kg

DRUGS (2)
  1. ZITHROMAX [Suspect]
     Active Substance: AZITHROMYCIN DIHYDRATE
     Dosage: 0.18 G, 1X/DAY
     Route: 041
     Dates: start: 20190807, end: 20190808
  2. ZITHROMAX [Suspect]
     Active Substance: AZITHROMYCIN DIHYDRATE
     Indication: PNEUMONIA
     Dosage: 0.13 G, 1X/DAY
     Route: 041
     Dates: start: 20190806, end: 20190806

REACTIONS (6)
  - Rash [Recovered/Resolved]
  - Blister [Unknown]
  - Urticaria [Unknown]
  - Pruritus [Unknown]
  - Product use issue [Unknown]
  - Off label use [Unknown]

NARRATIVE: CASE EVENT DATE: 20190806
